FAERS Safety Report 4684830-7 (Version None)
Quarter: 2005Q2

REPORT INFORMATION
  Report Type: 
  Country: None (occurrence: None)
  Receive Date: 20050531
  Receipt Date: 20041215
  Transmission Date: 20051028
  Serious: Yes (Other)
  Sender: FDA-Public Use
  Company Number: USA041286223

PATIENT
  Sex: Female

DRUGS (2)
  1. ZYPREXA [Suspect]
  2. SYMBYAX [Suspect]

REACTIONS (1)
  - CONVULSION [None]
